FAERS Safety Report 6038206-0 (Version None)
Quarter: 2009Q1

REPORT INFORMATION
  Report Type: 
  Country: None (occurrence: None)
  Receive Date: 20090115
  Receipt Date: 20090109
  Transmission Date: 20090719
  Serious: Yes (Other)
  Sender: FDA-Public Use
  Company Number: IT-ASTRAZENECA-2008SE05065

PATIENT
  Age: 20060 Day
  Sex: Female

DRUGS (1)
  1. ARIMIDEX [Suspect]
     Indication: BREAST CANCER
     Route: 048
     Dates: start: 20050310, end: 20081024

REACTIONS (2)
  - HYPERCALCAEMIA [None]
  - HYPERPARATHYROIDISM [None]
